FAERS Safety Report 4380477-0 (Version None)
Quarter: 2004Q2

REPORT INFORMATION
  Report Type: 
  Country: None (occurrence: None)
  Receive Date: 20040614
  Receipt Date: 20040216
  Transmission Date: 20050107
  Serious: Yes (Other)
  Sender: FDA-Public Use
  Company Number: WAES 0402USA01656

PATIENT
  Age: 41 Year
  Sex: Male

DRUGS (1)
  1. COZAAR [Suspect]
     Dosage: 100 MG/BID/PO
     Route: 048

REACTIONS (3)
  - BLOOD CREATININE INCREASED [None]
  - DRUG LEVEL INCREASED [None]
  - PRESCRIBED OVERDOSE [None]
